FAERS Safety Report 9387379 (Version 1)
Quarter: 2013Q3

REPORT INFORMATION
  Report Type: Spontaneous
  Country: US (occurrence: US)
  Receive Date: 20130708
  Receipt Date: 20130708
  Transmission Date: 20140515
  Serious: No
  Sender: FDA-Public Use
  Company Number: US-GLAXOSMITHKLINE-A1021452A

PATIENT
  Age: 27 Year
  Sex: Male

DRUGS (8)
  1. POTIGA [Suspect]
     Indication: CONVULSION
     Dosage: 100MG THREE TIMES PER DAY
     Route: 048
     Dates: start: 20130102, end: 20130127
  2. TOPIRAMATE [Concomitant]
  3. CITALOPRAM [Concomitant]
  4. LEVOCETIRIZINE [Concomitant]
  5. LYRICA [Concomitant]
  6. DIAZEPAM [Concomitant]
  7. VIMPAT [Concomitant]
  8. XYZAL [Concomitant]

REACTIONS (6)
  - Cough [Recovered/Resolved]
  - Pharyngeal oedema [Not Recovered/Not Resolved]
  - Eating disorder [Not Recovered/Not Resolved]
  - Hypoaesthesia [Not Recovered/Not Resolved]
  - Swollen tongue [Not Recovered/Not Resolved]
  - Lip swelling [Not Recovered/Not Resolved]
